FAERS Safety Report 5109352-0 (Version None)
Quarter: 2006Q3

REPORT INFORMATION
  Report Type: 
  Country: None (occurrence: None)
  Receive Date: 20060918
  Receipt Date: 20060905
  Transmission Date: 20061208
  Serious: Yes (Other)
  Sender: FDA-Public Use
  Company Number: CHPA2006US08861

PATIENT
  Age: 60 Year
  Sex: Female
  Weight: 54.4 kg

DRUGS (1)
  1. EXCEDRIN EXTRA STRENGTH (NCH)(CAFFINE CITRATE, ACETYLSALICYLIC ACID, A [Suspect]
     Indication: HEADACHE
     Dosage: 2 DF, QD, ORAL
     Route: 048

REACTIONS (3)
  - DRUG ABUSER [None]
  - DRUG INEFFECTIVE [None]
  - HEADACHE [None]
